FAERS Safety Report 11236213 (Version 1)
Quarter: 2015Q3

REPORT INFORMATION
  Report Type: Report from Study
  Country: CO (occurrence: CO)
  Receive Date: 20150702
  Receipt Date: 20150702
  Transmission Date: 20151125
  Serious: Yes (Death)
  Sender: FDA-Public Use
  Company Number: CO-ABBVIE-15P-036-1419807-00

PATIENT
  Age: 74 Year
  Sex: Male
  Weight: 56 kg

DRUGS (1)
  1. ZEMPLAR [Suspect]
     Active Substance: PARICALCITOL
     Indication: HYPERPARATHYROIDISM SECONDARY
     Route: 050
     Dates: start: 20150223, end: 20150227

REACTIONS (6)
  - Malaise [Fatal]
  - Speech disorder [Fatal]
  - Muscle rigidity [Fatal]
  - Nausea [Fatal]
  - Intracranial aneurysm [Fatal]
  - Headache [Fatal]

NARRATIVE: CASE EVENT DATE: 20150618
